FAERS Safety Report 6015743-6 (Version None)
Quarter: 2008Q4

REPORT INFORMATION
  Report Type: 
  Country: None (occurrence: None)
  Receive Date: 20081222
  Receipt Date: 20080702
  Transmission Date: 20090506
  Serious: No
  Sender: FDA-Public Use
  Company Number: US-BAYER-200812949BCC

PATIENT
  Age: 84 Year
  Sex: Female
  Weight: 68 kg

DRUGS (5)
  1. ALEVE [Suspect]
     Indication: ARTHRALGIA
     Dosage: TOTAL DAILY DOSE: 440 MG  UNIT DOSE: 220 MG
     Route: 048
     Dates: start: 20080630, end: 20080701
  2. ALEVE [Suspect]
     Dosage: TOTAL DAILY DOSE: 440 MG  UNIT DOSE: 220 MG
     Route: 048
     Dates: start: 20080702
  3. ONE-A-DAY WOMEN [Concomitant]
  4. GARLIC [Concomitant]
  5. ASPIRIN [Concomitant]

REACTIONS (1)
  - ARTHRALGIA [None]
